FAERS Safety Report 4934806-7 (Version None)
Quarter: 2006Q1

REPORT INFORMATION
  Report Type: 
  Country: None (occurrence: None)
  Receive Date: 20060307
  Receipt Date: 20050421
  Transmission Date: 20060701
  Serious: Yes (Other)
  Sender: FDA-Public Use
  Company Number: US-MERCK-0504USA04252

PATIENT
  Age: 57 Year
  Sex: Male
  Weight: 132 kg

DRUGS (7)
  1. VIOXX [Suspect]
     Indication: ARTHRITIS
     Route: 048
     Dates: start: 20020909, end: 20040901
  2. INSULIN [Concomitant]
     Route: 065
  3. ACCUPRIL [Concomitant]
     Route: 065
  4. DIURETIC (UNSPECIFIED) [Concomitant]
     Route: 065
  5. POTASSIUM (UNSPECIFIED) [Concomitant]
     Route: 065
  6. COMBIVENT [Concomitant]
     Route: 065
  7. DARVOCET [Concomitant]
     Route: 065

REACTIONS (4)
  - ANXIETY [None]
  - CEREBROVASCULAR ACCIDENT [None]
  - EMOTIONAL DISTRESS [None]
  - PAIN [None]
